FAERS Safety Report 6120627-9 (Version None)
Quarter: 2009Q1

REPORT INFORMATION
  Report Type: 
  Country: None (occurrence: None)
  Receive Date: 20090312
  Receipt Date: 20090312
  Transmission Date: 20090719
  Serious: No
  Sender: FDA-Public Use
  Company Number: None

PATIENT
  Age: 56 Year
  Sex: Female
  Weight: 58.0604 kg

DRUGS (1)
  1. EVISTA [Suspect]
     Indication: OSTEOPOROSIS
     Dosage: 1 PILL DAILY PO
     Route: 048
     Dates: start: 20090220, end: 20090305

REACTIONS (2)
  - ARTHRALGIA [None]
  - GAIT DISTURBANCE [None]
